FAERS Safety Report 6278621-3 (Version None)
Quarter: 2009Q3

REPORT INFORMATION
  Report Type: 
  Country: None (occurrence: None)
  Receive Date: 20090722
  Receipt Date: 20090406
  Transmission Date: 20100115
  Serious: No
  Sender: FDA-Public Use
  Company Number: US-BAUSCH-2009BL001566

PATIENT
  Age: 62 Year
  Sex: Male

DRUGS (4)
  1. OPCON-A [Suspect]
     Indication: SEASONAL ALLERGY
     Route: 047
     Dates: start: 20090404, end: 20090404
  2. ASCORBIC ACID [Concomitant]
  3. VITAMIN E [Concomitant]
  4. MULTI-VITAMINS [Concomitant]

REACTIONS (3)
  - APPLICATION SITE ANAESTHESIA [None]
  - INSTILLATION SITE IRRITATION [None]
  - MYDRIASIS [None]
